FAERS Safety Report 7603256-7 (Version None)
Quarter: 2011Q2

REPORT INFORMATION
  Report Type: 
  Country: None (occurrence: None)
  Receive Date: 20110630
  Receipt Date: 20110624
  Transmission Date: 20111010
  Serious: Yes (Hospitalization)
  Sender: FDA-Public Use
  Company Number: KR-JNJFOC-20110607397

PATIENT
  Age: 47 Year
  Sex: Male
  Weight: 84.5 kg

DRUGS (10)
  1. CITOPCIN (CIPROFLOXACIN HYDROCHLORIDE) TABLET [Concomitant]
  2. ITRAC 3 (ITRACONAZOLE) [Concomitant]
  3. LIDOCAINE (LIDOCAINE) GEL [Concomitant]
  4. DECITABINE [Suspect]
     Indication: MYELODYSPLASTIC SYNDROME
     Dosage: 20 MG/M2, INTRAVENOUS
     Route: 042
     Dates: start: 20110516, end: 20110520
  5. VIVIR (ACICLOVIR) [Concomitant]
  6. UNSPECIFIED FOLIC ACID (FOLIC ACID) UNSPECIFIED [Concomitant]
  7. BEECOM-HEXA (B-KOMPLEX) [Concomitant]
  8. CHLORHEXIDINE GLUCONATE [Concomitant]
  9. NYSTATIN [Concomitant]
  10. VENITOL (DIOSMIN) TABLET [Concomitant]

REACTIONS (3)
  - FEBRILE NEUTROPENIA [None]
  - INFECTION [None]
  - ANAL ABSCESS [None]
